FAERS Safety Report 23605543 (Version 1)
Quarter: 2024Q1

REPORT INFORMATION
  Report Type: Spontaneous
  Country: US (occurrence: US)
  Receive Date: 20240307
  Receipt Date: 20240307
  Transmission Date: 20240410
  Serious: No
  Sender: FDA-Public Use
  Company Number: US-SA-SAC20240301001230

PATIENT
  Age: 5 Year
  Sex: Male

DRUGS (1)
  1. DUPIXENT [Suspect]
     Active Substance: DUPILUMAB
     Indication: Dermatitis atopic
     Dosage: 300 MG, Q4W
     Route: 058

REACTIONS (7)
  - Pruritus [Recovering/Resolving]
  - Skin fissures [Unknown]
  - Skin weeping [Unknown]
  - Skin haemorrhage [Unknown]
  - Dry skin [Recovering/Resolving]
  - Skin exfoliation [Unknown]
  - Eczema [Recovering/Resolving]
